FAERS Safety Report 13473065 (Version 2)
Quarter: 2017Q2

REPORT INFORMATION
  Report Type: Spontaneous
  Country: US (occurrence: US)
  Receive Date: 20170424
  Receipt Date: 20170530
  Transmission Date: 20170830
  Serious: Yes (Hospitalization)
  Sender: FDA-Public Use
  Company Number: US-ASTELLAS-2017US015315

PATIENT
  Sex: Male

DRUGS (1)
  1. PROGRAF [Suspect]
     Active Substance: TACROLIMUS\TACROLIMUS ANHYDROUS
     Indication: PANCREAS TRANSPLANT
     Dosage: 3 MG, TWICE DAILY (3 MG AT 8 AM, 3 MG AT 8 PM)
     Route: 048
     Dates: start: 20071005

REACTIONS (2)
  - Off label use [Unknown]
  - Scar excision [Recovered/Resolved]

NARRATIVE: CASE EVENT DATE: 2008
